FAERS Safety Report 10063076 (Version 2)
Quarter: 2014Q3

REPORT INFORMATION
  Report Type: Spontaneous
  Country: US (occurrence: US)
  Receive Date: 20140407
  Receipt Date: 20140701
  Transmission Date: 20150326
  Serious: No
  Sender: FDA-Public Use
  Company Number: US-009507513-1404USA000595

PATIENT
  Sex: Female
  Weight: 68.27 kg

DRUGS (4)
  1. HYDROCODONE [Concomitant]
     Active Substance: HYDROCODONE
     Indication: PRODUCT USED FOR UNKNOWN INDICATION
     Dosage: UNK, UNKNOWN
  2. ALENDRONATE SODIUM. [Concomitant]
     Active Substance: ALENDRONATE SODIUM
     Indication: PRODUCT USED FOR UNKNOWN INDICATION
     Dosage: UNK, UNKNOWN
  3. CALCIUM (UNSPECIFIED) [Concomitant]
     Active Substance: CALCIUM
     Indication: PRODUCT USED FOR UNKNOWN INDICATION
     Dosage: UNK, UNKNOWN
  4. OXYTROL FOR WOMEN [Suspect]
     Active Substance: OXYBUTYNIN
     Indication: HYPERTONIC BLADDER
     Dosage: UNK, Q4D
     Route: 062

REACTIONS (1)
  - Drug ineffective [Unknown]
